FAERS Safety Report 14785186 (Version 1)
Quarter: 2018Q2

REPORT INFORMATION
  Report Type: Spontaneous
  Country: RU (occurrence: RU)
  Receive Date: 20180420
  Receipt Date: 20180420
  Transmission Date: 20180711
  Serious: Yes (Hospitalization)
  Sender: FDA-Public Use
  Company Number: RU-ASTRAZENECA-2018SE16024

PATIENT
  Age: 53 Year
  Sex: Male
  Weight: 103 kg

DRUGS (10)
  1. CORDARONE [Concomitant]
     Active Substance: AMIODARONE HYDROCHLORIDE
  2. PRESTARIUM [Concomitant]
     Active Substance: PERINDOPRIL
  3. BISOPROLOL [Concomitant]
     Active Substance: BISOPROLOL
     Dates: start: 20180224
  4. ASPIRIN CARDIO [Suspect]
     Active Substance: ASPIRIN
     Route: 065
  5. VEROSPIRON [Concomitant]
     Active Substance: SPIRONOLACTONE
     Dates: start: 20180224
  6. ROSUCARD [Concomitant]
     Active Substance: ROSUVASTATIN CALCIUM
     Dates: start: 20180224
  7. BRILINTA [Suspect]
     Active Substance: TICAGRELOR
     Indication: MYOCARDIAL INFARCTION
     Route: 048
     Dates: start: 20171127, end: 20180224
  8. CARDIKET [Concomitant]
     Active Substance: ISOSORBIDE DINITRATE
  9. WARFARIN [Concomitant]
     Active Substance: WARFARIN
  10. DIGOXIN. [Concomitant]
     Active Substance: DIGOXIN
     Dates: start: 20180224

REACTIONS (3)
  - Angina unstable [Unknown]
  - Intentional product misuse [Recovered/Resolved]
  - Dyspnoea [Not Recovered/Not Resolved]

NARRATIVE: CASE EVENT DATE: 20180224
